FAERS Safety Report 5783163-5 (Version None)
Quarter: 2008Q2

REPORT INFORMATION
  Report Type: 
  Country: None (occurrence: None)
  Receive Date: 20080619
  Receipt Date: 20080619
  Transmission Date: 20081010
  Serious: Yes (Hospitalization)
  Sender: FDA-Public Use
  Company Number: None

PATIENT
  Sex: Female
  Weight: 71.6683 kg

DRUGS (2)
  1. OXALIPLATIN [Suspect]
     Indication: LARYNGEAL CANCER
     Dosage: 145MG DAY 1+15 Q 28 DAYS IV
     Route: 042
     Dates: start: 20071130, end: 20080523
  2. XELODA [Suspect]
     Dosage: 1500MG BID DL-7+15-21Q28D PO
     Route: 048
     Dates: start: 20071030, end: 20080530

REACTIONS (7)
  - BLOOD CULTURE POSITIVE [None]
  - LARYNGEAL CANCER [None]
  - MALIGNANT NEOPLASM PROGRESSION [None]
  - NAUSEA [None]
  - PNEUMONIA [None]
  - STAPHYLOCOCCAL INFECTION [None]
  - VOMITING [None]
